FAERS Safety Report 22123346 (Version 2)
Quarter: 2023Q2

REPORT INFORMATION
  Report Type: Report from Study
  Country: IT (occurrence: IT)
  Receive Date: 20230322
  Receipt Date: 20230603
  Transmission Date: 20230722
  Serious: Yes (Other)
  Sender: FDA-Public Use
  Company Number: IT-CELLTRION INC.-2023IT005700

PATIENT

DRUGS (5)
  1. TRASTUZUMAB [Suspect]
     Active Substance: TRASTUZUMAB
     Indication: HER2 positive breast cancer
     Dosage: LAST DOSE BEFORE SAE 02/03/2020
     Route: 042
     Dates: start: 20191230
  2. ATEZOLIZUMAB [Suspect]
     Active Substance: ATEZOLIZUMAB
     Indication: Breast cancer
     Dosage: LAST DOSE BEFORE SAE 02/03/202C
     Route: 042
     Dates: start: 20191230
  3. PERTUZUMAB [Suspect]
     Active Substance: PERTUZUMAB
     Indication: HER2 positive breast cancer
     Dosage: LAST DOSE BEFORE SAE 02/03/2020
     Route: 042
     Dates: start: 20191230
  4. CARBOPLATIN [Concomitant]
     Active Substance: CARBOPLATIN
  5. TAXOL [Concomitant]
     Active Substance: PACLITAXEL
     Dosage: LAST DOSE BEFORE SAE 02/03/2020
     Dates: start: 20191230

REACTIONS (2)
  - Hyperthyroidism [Recovered/Resolved]
  - Overdose [Unknown]

NARRATIVE: CASE EVENT DATE: 20200302
